FAERS Safety Report 8832841 (Version 1)
Quarter: 2012Q4

REPORT INFORMATION
  Report Type: Spontaneous
  Country: US (occurrence: None)
  Receive Date: 20121009
  Receipt Date: 20121009
  Transmission Date: 20130627
  Serious: No
  Sender: FDA-Public Use
  Company Number: None

PATIENT
  Age: 18 Year
  Sex: Male

DRUGS (1)
  1. LAMOTRIGINE [Suspect]
     Indication: EPILEPSY
     Dosage: 150 mg, 2 tabs, twice daily, po
     Route: 048

REACTIONS (2)
  - Convulsion [None]
  - Product substitution issue [None]
